FAERS Safety Report 7117853-9 (Version None)
Quarter: 2010Q4

REPORT INFORMATION
  Report Type: 
  Country: None (occurrence: None)
  Receive Date: 20101118
  Receipt Date: 20101118
  Transmission Date: 20110411
  Serious: Yes (Other)
  Sender: FDA-Public Use
  Company Number: None

PATIENT
  Age: 14 Year
  Sex: Female

DRUGS (1)
  1. ABILIFY [Suspect]
     Indication: BIPOLAR DISORDER
     Dosage: 1 TABLET 1 X A DAY HAS IMPROVED A LOT
     Dates: start: 20101008, end: 20101027

REACTIONS (2)
  - EYE MOVEMENT DISORDER [None]
  - NAUSEA [None]
